FAERS Safety Report 5074414-3 (Version None)
Quarter: 2006Q3

REPORT INFORMATION
  Report Type: 
  Country: None (occurrence: None)
  Receive Date: 20060803
  Receipt Date: 20060720
  Transmission Date: 20061208
  Serious: Yes (Hospitalization)
  Sender: FDA-Public Use
  Company Number: 111687ISR

PATIENT
  Age: 47 Year
  Sex: Female

DRUGS (2)
  1. CISPLATIN [Suspect]
     Indication: OVARIAN CANCER
  2. CARBOPLATIN [Suspect]
     Indication: OVARIAN CANCER

REACTIONS (5)
  - ADENOCARCINOMA [None]
  - DISEASE PROGRESSION [None]
  - METASTASIS [None]
  - PURULENT DISCHARGE [None]
  - PYREXIA [None]
